FAERS Safety Report 8427815-7 (Version None)
Quarter: 2012Q2

REPORT INFORMATION
  Report Type: 
  Country: None (occurrence: None)
  Receive Date: 20120323
  Receipt Date: 20111220
  Transmission Date: 20120825
  Serious: Yes (Hospitalization, Other)
  Sender: FDA-Public Use
  Company Number: 163-21880-11114141

PATIENT
  Age: 87 Year
  Sex: Male

DRUGS (4)
  1. NEUPOGEN [Concomitant]
  2. REVLIMID [Suspect]
     Indication: MYELODYSPLASTIC SYNDROME
     Dosage: 10 MG, QD X 21/28 DAYS, PO
     Route: 048
     Dates: start: 20110322
  3. PROCRIT [Concomitant]
  4. COUMADIN [Concomitant]

REACTIONS (3)
  - ANGINA PECTORIS [None]
  - LEUKOPENIA [None]
  - PLATELET COUNT DECREASED [None]
